FAERS Safety Report 21687613 (Version 1)
Quarter: 2022Q4

REPORT INFORMATION
  Report Type: Spontaneous
  Country: BG (occurrence: BG)
  Receive Date: 20221206
  Receipt Date: 20221206
  Transmission Date: 20230113
  Serious: Yes (Hospitalization, Other)
  Sender: FDA-Public Use
  Company Number: BG-MYLANLABS-2022M1134832

PATIENT
  Age: 77 Year
  Sex: Male

DRUGS (6)
  1. HYDROCHLOROTHIAZIDE\OLMESARTAN MEDOXOMIL [Suspect]
     Active Substance: HYDROCHLOROTHIAZIDE\OLMESARTAN MEDOXOMIL
     Indication: Hypertension
     Dosage: 32.5 MILLIGRAM, QD
     Route: 048
     Dates: start: 2018
  2. IRBESARTAN AND HYDROCHLOROTHIAZIDE [Suspect]
     Active Substance: HYDROCHLOROTHIAZIDE\IRBESARTAN
     Indication: Hypertension
     Dosage: 162.5 MILLIGRAM, QD
     Route: 048
     Dates: start: 2019
  3. TELMISARTAN AND HYDROCHLOROTHIAZIDE [Suspect]
     Active Substance: HYDROCHLOROTHIAZIDE\TELMISARTAN
     Indication: Hypertension
     Dosage: 92.5 MILLIGRAM
     Route: 065
  4. MOXONIDINE [Suspect]
     Active Substance: MOXONIDINE
     Indication: Hypertension
     Dosage: 0.4 MILLIGRAM, QD
     Route: 048
     Dates: start: 2022
  5. TORSEMIDE [Concomitant]
     Active Substance: TORSEMIDE
     Indication: Hypertension
     Dosage: 10 MILLIGRAM, QD
     Route: 065
     Dates: start: 2022
  6. FLECAINIDE ACETATE [Concomitant]
     Active Substance: FLECAINIDE ACETATE
     Indication: Hypertension
     Dosage: 100 MILLIGRAM, BID
     Route: 065
     Dates: start: 2022

REACTIONS (3)
  - Lentigo maligna [Recovered/Resolved]
  - Melanocytic naevus [Recovered/Resolved]
  - Dysplasia [Recovered/Resolved]

NARRATIVE: CASE EVENT DATE: 20220201
